FAERS Safety Report 17975308 (Version 1)
Quarter: 2020Q3

REPORT INFORMATION
  Report Type: Spontaneous
  Country: ES (occurrence: ES)
  Receive Date: 20200702
  Receipt Date: 20200702
  Transmission Date: 20201103
  Serious: Yes (Other)
  Sender: FDA-Public Use
  Company Number: NVSC2020ES181191

PATIENT
  Age: 12 Year
  Sex: Female
  Weight: 38 kg

DRUGS (6)
  1. CEFEPIMA [Suspect]
     Active Substance: CEFEPIME HYDROCHLORIDE
     Indication: FEBRILE NEUTROPENIA
     Dosage: 2 G, Q8H (2000MG/8H)
     Route: 042
     Dates: start: 20191019, end: 20191025
  2. LINEZOLID. [Suspect]
     Active Substance: LINEZOLID
     Indication: FEBRILE NEUTROPENIA
     Dosage: 400 MG, Q12H
     Route: 042
     Dates: start: 20191020, end: 20191025
  3. CITARABINA [Suspect]
     Active Substance: CYTARABINE
     Indication: ACUTE MYELOID LEUKAEMIA
     Dosage: 2000 MG/M2 (TOTAL 5 DOSIS)
     Route: 042
     Dates: start: 20191023, end: 20191026
  4. PARACETAMOL [Suspect]
     Active Substance: ACETAMINOPHEN
     Indication: FEBRILE NEUTROPENIA
     Dosage: UNK (430MG/8H SI PRECISA)
     Route: 042
     Dates: start: 20191019, end: 20191024
  5. FLUDARABINA [Suspect]
     Active Substance: FLUDARABINE PHOSPHATE
     Indication: ACUTE MYELOID LEUKAEMIA
     Dosage: 30 MG/M2 (TOTAL 5 DOSIS)
     Route: 042
     Dates: start: 20191023, end: 20191026
  6. METHOTREXATE. [Suspect]
     Active Substance: METHOTREXATE
     Indication: ACUTE MYELOID LEUKAEMIA
     Dosage: UNK (METOTREXATO INTRATECAL EL PRIMER DIA DE CICLO)
     Route: 037
     Dates: start: 20191023, end: 20191023

REACTIONS (2)
  - Hepatitis [Recovered/Resolved]
  - Hyperbilirubinaemia [Recovered/Resolved]

NARRATIVE: CASE EVENT DATE: 20191031
